FAERS Safety Report 15344683 (Version 19)
Quarter: 2018Q4

REPORT INFORMATION
  Report Type: Report from Study
  Country: IT (occurrence: IT)
  Receive Date: 20180903
  Receipt Date: 20181219
  Transmission Date: 20190204
  Serious: Yes (Life-Threatening, Hospitalization)
  Sender: FDA-Public Use
  Company Number: IT-PFIZER INC-2018350229

PATIENT
  Age: 67 Year
  Sex: Female

DRUGS (14)
  1. COMPENDIUM [Suspect]
     Active Substance: BROMAZEPAM
     Indication: DRUG ABUSE
     Dosage: 20 ML, SINGLE (TOTAL)
     Route: 048
     Dates: start: 20180708, end: 20180708
  2. HALCION [Suspect]
     Active Substance: TRIAZOLAM
     Indication: INTENTIONAL SELF-INJURY
  3. ACETYLSALICYLIC ACID [Suspect]
     Active Substance: ASPIRIN
     Indication: INTENTIONAL SELF-INJURY
  4. ACETYLSALICYLIC ACID [Suspect]
     Active Substance: ASPIRIN
     Indication: DRUG ABUSE
     Dosage: 2900 MG, SINGLE (TOTAL)
     Route: 048
     Dates: start: 20180708, end: 20180708
  5. LAROXYL [Suspect]
     Active Substance: AMITRIPTYLINE HYDROCHLORIDE
     Indication: INTENTIONAL SELF-INJURY
  6. VENLAFAXINE [Suspect]
     Active Substance: VENLAFAXINE HYDROCHLORIDE
     Indication: DRUG ABUSE
     Dosage: 8 DF, SINGLE (TOTAL)
     Route: 048
     Dates: start: 20180708, end: 20180708
  7. PANTOPRAZOLE [Suspect]
     Active Substance: PANTOPRAZOLE
     Indication: DRUG ABUSE
     Dosage: 417.5 MG, SINGLE (TOTAL)
     Route: 048
     Dates: start: 20180708, end: 20180708
  8. RAMIPRIL. [Suspect]
     Active Substance: RAMIPRIL
     Indication: INTENTIONAL SELF-INJURY
  9. LAROXYL [Suspect]
     Active Substance: AMITRIPTYLINE HYDROCHLORIDE
     Indication: DRUG ABUSE
     Dosage: 24 DF, SINGLE (TOTAL)
     Route: 048
     Dates: start: 20180708, end: 20180708
  10. COMPENDIUM [Suspect]
     Active Substance: BROMAZEPAM
     Indication: INTENTIONAL SELF-INJURY
  11. RAMIPRIL. [Suspect]
     Active Substance: RAMIPRIL
     Indication: DRUG ABUSE
     Dosage: 17.5 MG, SINGLE (TOTAL)
     Route: 048
     Dates: start: 20180708, end: 20180708
  12. PANTOPRAZOLE [Suspect]
     Active Substance: PANTOPRAZOLE
     Indication: INTENTIONAL SELF-INJURY
  13. HALCION [Suspect]
     Active Substance: TRIAZOLAM
     Indication: DRUG ABUSE
     Dosage: 30 DF, SINGLE (TOTAL)
     Route: 048
     Dates: start: 20180708, end: 20180708
  14. VENLAFAXINE [Suspect]
     Active Substance: VENLAFAXINE HYDROCHLORIDE
     Indication: INTENTIONAL SELF-INJURY

REACTIONS (4)
  - Drug abuse [Recovering/Resolving]
  - Confusional state [Recovering/Resolving]
  - Intentional overdose [Unknown]
  - Sopor [Recovering/Resolving]

NARRATIVE: CASE EVENT DATE: 20180708
